FAERS Safety Report 21563439 (Version 1)
Quarter: 2022Q4

REPORT INFORMATION
  Report Type: Spontaneous
  Country: US (occurrence: US)
  Receive Date: 20221108
  Receipt Date: 20221108
  Transmission Date: 20230112
  Serious: No
  Sender: FDA-Public Use
  Company Number: US-LUPIN PHARMACEUTICALS INC.-2022-12887

PATIENT
  Age: 9 Year
  Sex: Female

DRUGS (8)
  1. VORICONAZOLE [Suspect]
     Active Substance: VORICONAZOLE
     Indication: Phaeohyphomycotic brain abscess
     Dosage: UNK
  2. AMPHOTERICIN B [Concomitant]
     Active Substance: AMPHOTERICIN B
     Indication: Phaeohyphomycotic brain abscess
     Dosage: 5 MILLIGRAM/KILOGRAM (THRICE WEEKLY (LIPOSOMAL))
     Route: 042
  3. AMPHOTERICIN B [Concomitant]
     Active Substance: AMPHOTERICIN B
     Indication: Phaeohyphomycotic brain abscess
     Dosage: 0.05 MG, QD
  4. AMPHOTERICIN B [Concomitant]
     Active Substance: AMPHOTERICIN B
     Dosage: 0.25 MG, QD
  5. FLUCYTOSINE [Concomitant]
     Active Substance: FLUCYTOSINE
     Indication: Phaeohyphomycotic brain abscess
     Dosage: UNK
  6. DEXTROSE [Concomitant]
     Active Substance: DEXTROSE
     Indication: Phaeohyphomycotic brain abscess
     Dosage: 2 MILLILITER
  7. PRIVIGEN [Concomitant]
     Active Substance: HUMAN IMMUNOGLOBULIN G
     Indication: Hypogammaglobulinaemia
     Dosage: UNK (3 WEEKS)
     Route: 042
  8. VORICONAZOLE [Concomitant]
     Active Substance: VORICONAZOLE
     Indication: Phaeohyphomycotic brain abscess
     Dosage: UNK
     Route: 042

REACTIONS (4)
  - Inflammation [Unknown]
  - Rash [Unknown]
  - Melanocytic naevus [Unknown]
  - Lentigo [Unknown]
